FAERS Safety Report 8329487-9 (Version None)
Quarter: 2012Q2

REPORT INFORMATION
  Report Type: 
  Country: None (occurrence: None)
  Receive Date: 20120502
  Receipt Date: 20120419
  Transmission Date: 20120825
  Serious: Yes (Other)
  Sender: FDA-Public Use
  Company Number: JP-ROCHE-1063728

PATIENT
  Sex: Female
  Weight: 72.4 kg

DRUGS (6)
  1. MICARDIS [Concomitant]
     Indication: HYPERTENSION
     Route: 048
     Dates: start: 20120322
  2. BI 207127 [Suspect]
     Indication: HEPATITIS C
     Route: 048
     Dates: start: 20120329
  3. IMIDAFENACIN [Concomitant]
     Indication: POLLAKIURIA
     Route: 048
  4. AMLODIPINE [Concomitant]
     Indication: HYPERTENSION
     Route: 048
     Dates: start: 20120406
  5. COPEGUS [Suspect]
     Indication: HEPATITIS C
     Route: 048
     Dates: start: 20120329
  6. BI 201335 (HCV PROTEASE INHIBITOR) [Suspect]
     Indication: HEPATITIS C
     Route: 048
     Dates: start: 20120329

REACTIONS (1)
  - PHOTOSENSITIVITY REACTION [None]
